FAERS Safety Report 8461856-9 (Version None)
Quarter: 2012Q2

REPORT INFORMATION
  Report Type: 
  Country: None (occurrence: None)
  Receive Date: 20120625
  Receipt Date: 20120615
  Transmission Date: 20120825
  Serious: Yes (Disabling, Other)
  Sender: FDA-Public Use
  Company Number: GB-ASTRAZENECA-2012SE14055

PATIENT
  Age: 22537 Day
  Sex: Female

DRUGS (5)
  1. SEROQUEL [Suspect]
     Route: 048
     Dates: start: 20090227, end: 20090320
  2. ANTIHYPERTENSIVES [Concomitant]
     Indication: HYPERTENSION
  3. SEPTRAN [Concomitant]
     Indication: TRANSIENT ISCHAEMIC ATTACK
     Route: 048
  4. PREDNISONE TAB [Concomitant]
     Indication: HYPERTENSION
     Route: 048
  5. ASPIRIN [Concomitant]
     Indication: CEREBROVASCULAR ACCIDENT PROPHYLAXIS
     Route: 048

REACTIONS (6)
  - SYNCOPE [None]
  - SPINAL DEFORMITY [None]
  - MUSCLE SPASMS [None]
  - CEREBRAL HAEMORRHAGE [None]
  - HEADACHE [None]
  - GAIT DISTURBANCE [None]
